FAERS Safety Report 10651815 (Version 3)
Quarter: 2015Q1

REPORT INFORMATION
  Report Type: Spontaneous
  Country: IT (occurrence: IT)
  Receive Date: 20141215
  Receipt Date: 20150115
  Transmission Date: 20150720
  Serious: Yes (Hospitalization, Other)
  Sender: FDA-Public Use
  Company Number: IT-PFIZER INC-2014325710

PATIENT
  Age: 67 Year
  Sex: Male

DRUGS (5)
  1. SUTENT [Suspect]
     Active Substance: SUNITINIB MALATE
     Indication: METASTATIC RENAL CELL CARCINOMA
     Dosage: 37.5 MG/DAILY, 4 WEEKS ON/2 OFF CYCLIC
  2. DOXAZOSIN [Concomitant]
     Active Substance: DOXAZOSIN\DOXAZOSIN MESYLATE
     Indication: HYPERTENSION
  3. SUTENT [Suspect]
     Active Substance: SUNITINIB MALATE
     Dosage: 50 MG/DAILY, 4 WEEKS ON/2 OFF CYCLIC
     Dates: end: 20130812
  4. SOLOSA [Concomitant]
     Active Substance: GLIMEPIRIDE
     Indication: DIABETES MELLITUS
  5. METFORAL [Concomitant]
     Active Substance: METFORMIN HYDROCHLORIDE
     Indication: DIABETES MELLITUS

REACTIONS (12)
  - Dyspnoea [Recovered/Resolved]
  - Pleural effusion [Unknown]
  - Hyperkalaemia [Unknown]
  - Pain [Recovered/Resolved]
  - Urinary tract infection [Unknown]
  - Platelet count decreased [Unknown]
  - Metastatic renal cell carcinoma [Unknown]
  - Chronic kidney disease [Unknown]
  - Hyperpyrexia [Recovered/Resolved]
  - Atrial fibrillation [Recovered/Resolved]
  - Pulmonary embolism [Unknown]
  - Disease progression [Unknown]

NARRATIVE: CASE EVENT DATE: 2013
